FAERS Safety Report 8157825-9 (Version None)
Quarter: 2012Q1

REPORT INFORMATION
  Report Type: 
  Country: None (occurrence: None)
  Receive Date: 20120222
  Receipt Date: 20120210
  Transmission Date: 20120608
  Serious: Yes (Hospitalization)
  Sender: FDA-Public Use
  Company Number: FR-PFIZER INC-2011166854

PATIENT
  Age: 85 Year
  Sex: Male

DRUGS (9)
  1. ALFUZOSIN HCL [Concomitant]
     Dosage: UNK
  2. LASIX [Concomitant]
     Dosage: 2.5 TABLET DAILY
  3. ALLOPURINOL [Concomitant]
     Dosage: UNK
  4. RAMIPRIL [Concomitant]
  5. BISOPROLOL FUMARATE [Concomitant]
  6. CORDARONE [Suspect]
     Indication: ATRIAL FLUTTER
     Dosage: 1 DOSE FORM DAILY
     Route: 048
     Dates: start: 20100501, end: 20101101
  7. VASTAREL [Concomitant]
     Dosage: UNK
  8. ESOMEPRAZOLE [Concomitant]
     Dosage: UNK
  9. DRONEDARONE [Suspect]
     Indication: ATRIAL FIBRILLATION
     Dosage: 400 MG
     Route: 048
     Dates: start: 20101101, end: 20110401

REACTIONS (3)
  - PEMPHIGUS [None]
  - PHOTOSENSITIVITY REACTION [None]
  - TOXIC SKIN ERUPTION [None]
